FAERS Safety Report 7990677-6 (Version None)
Quarter: 2011Q4

REPORT INFORMATION
  Report Type: 
  Country: None (occurrence: None)
  Receive Date: 20111219
  Receipt Date: 20110119
  Transmission Date: 20120403
  Serious: No
  Sender: FDA-Public Use
  Company Number: US-BAYER-2011-007282

PATIENT
  Age: 60 Year
  Sex: Female

DRUGS (1)
  1. CLIMARA [Suspect]
     Dosage: 0.6 MG, UNK
     Route: 062

REACTIONS (5)
  - URTICARIA [None]
  - SCAB [None]
  - SWELLING FACE [None]
  - PRURITUS [None]
  - SKIN DISORDER [None]
